FAERS Safety Report 17709650 (Version 1)
Quarter: 2020Q2

REPORT INFORMATION
  Report Type: Spontaneous
  Country: DE (occurrence: DE)
  Receive Date: 20200427
  Receipt Date: 20200427
  Transmission Date: 20200714
  Serious: Yes (Other)
  Sender: FDA-Public Use
  Company Number: DE-HIKMA PHARMACEUTICALS USA INC.-DE-H14001-20-51176

PATIENT

DRUGS (2)
  1. ATRACURIUM [Suspect]
     Active Substance: ATRACURIUM
     Indication: SEDATION
     Route: 065
     Dates: start: 20200313
  2. ATRACURIUM [Suspect]
     Active Substance: ATRACURIUM
     Indication: TRANSCATHETER AORTIC VALVE IMPLANTATION

REACTIONS (3)
  - Wrong product administered [Unknown]
  - Dependence on respirator [Unknown]
  - Product packaging confusion [Unknown]

NARRATIVE: CASE EVENT DATE: 20200313
